FAERS Safety Report 8100004-1 (Version None)
Quarter: 2012Q1

REPORT INFORMATION
  Report Type: 
  Country: None (occurrence: None)
  Receive Date: 20120129
  Receipt Date: 20111101
  Transmission Date: 20120608
  Serious: No
  Sender: FDA-Public Use
  Company Number: US-ABBOTT-11P-163-0870741-00

PATIENT
  Sex: Male
  Weight: 87.622 kg

DRUGS (2)
  1. HUMIRA [Suspect]
     Indication: PSORIASIS
     Route: 058
     Dates: start: 20110901
  2. KLONOPIN [Concomitant]
     Indication: TEMPOROMANDIBULAR JOINT SYNDROME

REACTIONS (2)
  - PAIN [None]
  - MUSCLE STRAIN [None]
